FAERS Safety Report 13193355 (Version 1)
Quarter: 2017Q1

REPORT INFORMATION
  Report Type: Spontaneous
  Country: US (occurrence: US)
  Receive Date: 20170207
  Receipt Date: 20170207
  Transmission Date: 20170428
  Serious: Yes (Hospitalization, Other)
  Sender: FDA-Public Use
  Company Number: US-PFIZER INC-2017048929

PATIENT
  Age: 21 Year
  Sex: Female
  Weight: 48 kg

DRUGS (3)
  1. DEPO-PROVERA [Suspect]
     Active Substance: MEDROXYPROGESTERONE ACETATE
     Dosage: 150 MG, UNK
     Route: 030
     Dates: start: 20161212
  2. MINOCYCLINE [Concomitant]
     Active Substance: MINOCYCLINE\MINOCYCLINE HYDROCHLORIDE
     Indication: ACNE
  3. DEPO-PROVERA [Suspect]
     Active Substance: MEDROXYPROGESTERONE ACETATE
     Indication: CONTRACEPTION
     Dosage: 150 MG, UNK
     Route: 030
     Dates: start: 20160923

REACTIONS (9)
  - Depression [Recovering/Resolving]
  - Road traffic accident [Recovering/Resolving]
  - Feeling abnormal [Recovering/Resolving]
  - Impaired self-care [Recovered/Resolved]
  - Mood swings [Recovering/Resolving]
  - Intentional self-injury [Recovering/Resolving]
  - Product use issue [Unknown]
  - Dizziness [Recovered/Resolved]
  - Dissociation [Recovering/Resolving]

NARRATIVE: CASE EVENT DATE: 2016
